FAERS Safety Report 19089056 (Version 1)
Quarter: 2021Q2

REPORT INFORMATION
  Report Type: Spontaneous
  Country: FR (occurrence: FR)
  Receive Date: 20210403
  Receipt Date: 20210403
  Transmission Date: 20210717
  Serious: Yes (Hospitalization)
  Sender: FDA-Public Use
  Company Number: FR-TEVA-2021-FR-1896460

PATIENT
  Age: 32 Year
  Sex: Female
  Weight: 45.8 kg

DRUGS (10)
  1. AZATHIOPRINE. [Suspect]
     Active Substance: AZATHIOPRINE
     Indication: MANIA
     Dosage: 50 MG
     Route: 048
     Dates: start: 20201209, end: 20210113
  2. OLANZAPINE. [Suspect]
     Active Substance: OLANZAPINE
     Indication: MANIA
     Dosage: DOSAGE NOT KNOWN
     Route: 048
     Dates: start: 20201231, end: 20210113
  3. METHYLPREDNISOLONE. [Concomitant]
     Active Substance: METHYLPREDNISOLONE
     Route: 042
  4. TEMESTA [LORAZEPAM] [Concomitant]
     Active Substance: LORAZEPAM
     Route: 048
  5. ZARZIO [Concomitant]
     Active Substance: FILGRASTIM
     Route: 042
  6. VANCOMYCINE [Concomitant]
     Active Substance: VANCOMYCIN
     Route: 042
  7. PREDNISONE. [Concomitant]
     Active Substance: PREDNISONE
     Route: 048
  8. RISPERDAL [Concomitant]
     Active Substance: RISPERIDONE
     Route: 048
  9. TAZOCILLINE [Concomitant]
     Active Substance: PIPERACILLIN SODIUM\TAZOBACTAM SODIUM
     Route: 042
  10. PANTOPRAZOLE [Concomitant]
     Active Substance: PANTOPRAZOLE
     Route: 048

REACTIONS (1)
  - Pancytopenia [Recovering/Resolving]

NARRATIVE: CASE EVENT DATE: 20210113
